FAERS Safety Report 23390770 (Version 1)
Quarter: 2024Q1

REPORT INFORMATION
  Report Type: Spontaneous
  Country: HU (occurrence: HU)
  Receive Date: 20240111
  Receipt Date: 20240111
  Transmission Date: 20240410
  Serious: Yes (Other)
  Sender: FDA-Public Use
  Company Number: HU-GERMAN-LIT/HUN/23/0032272

PATIENT
  Age: 78 Year
  Sex: Male

DRUGS (10)
  1. BORTEZOMIB [Suspect]
     Active Substance: BORTEZOMIB
     Indication: Plasma cell myeloma
  2. BORTEZOMIB [Suspect]
     Active Substance: BORTEZOMIB
     Dates: start: 202203
  3. BORTEZOMIB [Suspect]
     Active Substance: BORTEZOMIB
     Dates: start: 202209
  4. THALIDOMIDE [Suspect]
     Active Substance: THALIDOMIDE
     Indication: Plasma cell myeloma
     Dates: start: 202203
  5. THALIDOMIDE [Suspect]
     Active Substance: THALIDOMIDE
  6. DEXAMETHASONE [Suspect]
     Active Substance: DEXAMETHASONE
     Indication: Plasma cell myeloma
     Dates: start: 202203
  7. DEXAMETHASONE [Suspect]
     Active Substance: DEXAMETHASONE
     Dates: start: 202209
  8. DEXAMETHASONE [Suspect]
     Active Substance: DEXAMETHASONE
  9. VENETOCLAX [Concomitant]
     Active Substance: VENETOCLAX
     Indication: Plasma cell myeloma
     Dates: start: 202209
  10. VENETOCLAX [Concomitant]
     Active Substance: VENETOCLAX
     Dates: start: 202203

REACTIONS (2)
  - Drug ineffective [Unknown]
  - Off label use [Unknown]
